FAERS Safety Report 10176701 (Version 1)
Quarter: 2014Q2

REPORT INFORMATION
  Report Type: Spontaneous
  Country: US (occurrence: None)
  Receive Date: 20140515
  Receipt Date: 20140515
  Transmission Date: 20141212
  Serious: No
  Sender: FDA-Public Use
  Company Number: None

PATIENT
  Age: 9 Year
  Sex: Male
  Weight: 26.76 kg

DRUGS (2)
  1. WALGREEN^S IBUPROFEN 100 MG ORG1012-F, ITEM 221219, 3DE1303A [Suspect]
     Indication: PYREXIA
     Dosage: 2 PILLS?ONCE DAILY?TAKEN BY MOUTH
     Route: 048
     Dates: start: 20140420, end: 20140420
  2. WALGREEN^S IBUPROFEN 100 MG ORG1012-F, ITEM 221219, 3DE1303A [Suspect]
     Indication: PAIN
     Dosage: 2 PILLS?ONCE DAILY?TAKEN BY MOUTH
     Route: 048
     Dates: start: 20140420, end: 20140420

REACTIONS (3)
  - Glossodynia [None]
  - Oral discomfort [None]
  - Oral discomfort [None]
